FAERS Safety Report 4810533-1 (Version None)
Quarter: 2005Q4

REPORT INFORMATION
  Report Type: 
  Country: None (occurrence: None)
  Receive Date: 20051026
  Receipt Date: 20051019
  Transmission Date: 20060501
  Serious: Yes (Other)
  Sender: FDA-Public Use
  Company Number: 200518263US

PATIENT
  Sex: Male
  Weight: 107.5 kg

DRUGS (12)
  1. LANTUS [Suspect]
     Indication: DIABETES MELLITUS NON-INSULIN-DEPENDENT
     Dosage: DOSE UNIT: UNITS
     Route: 058
     Dates: start: 20051001, end: 20051001
  2. PREDNISONE [Suspect]
     Dates: start: 20050101
  3. HUMALOG [Concomitant]
     Dosage: FREQUENCY: BEFORE MEALS; DOSE UNIT: UNITS
     Route: 058
     Dates: start: 20051001
  4. DIGOXIN [Concomitant]
     Dosage: DOSE: UNK
  5. PLAVIX [Concomitant]
     Dosage: DOSE: UNK
  6. ATENOLOL [Concomitant]
     Dosage: DOSE: UNK
  7. GLIPIZIDE [Concomitant]
     Dosage: DOSE: UNK
  8. FLECAINIDE [Concomitant]
     Dosage: DOSE: UNK
  9. ZOCOR [Concomitant]
     Dosage: DOSE: UNK
  10. AVANDIA [Concomitant]
     Dosage: DOSE: UNK
  11. POTASSIUM [Concomitant]
  12. ISOSORBIDE MONONITRATE [Concomitant]
     Dosage: DOSE: UNK

REACTIONS (3)
  - BLOOD GLUCOSE DECREASED [None]
  - HYPERGLYCAEMIA [None]
  - PERICARDIAL EFFUSION [None]
